FAERS Safety Report 5027593-8 (Version None)
Quarter: 2006Q2

REPORT INFORMATION
  Report Type: 
  Country: None (occurrence: None)
  Receive Date: 20060614
  Receipt Date: 20060614
  Transmission Date: 20061013
  Serious: Yes (Life-Threatening, Hospitalization)
  Sender: FDA-Public Use
  Company Number: None

PATIENT
  Age: 67 Year
  Sex: Female
  Weight: 47.6277 kg

DRUGS (1)
  1. VISICOL [Suspect]
     Indication: COLONOSCOPY
     Dosage: FOUR TABLETS AS DIRECTED  Q 15 MINUTES  PO
     Route: 048

REACTIONS (7)
  - ANOREXIA [None]
  - ASTHENIA [None]
  - MALAISE [None]
  - NEPHROPATHY TOXIC [None]
  - POST PROCEDURAL COMPLICATION [None]
  - RENAL FAILURE ACUTE [None]
  - RENAL TUBULAR NECROSIS [None]
